FAERS Safety Report 5628087-9 (Version None)
Quarter: 2008Q1

REPORT INFORMATION
  Report Type: 
  Country: None (occurrence: None)
  Receive Date: 20080215
  Receipt Date: 20080213
  Transmission Date: 20080703
  Serious: Yes (Other)
  Sender: FDA-Public Use
  Company Number: US-ASTRAZENECA-2008UW00404

PATIENT
  Age: 25056 Day
  Sex: Male
  Weight: 95.5 kg

DRUGS (6)
  1. CRESTOR [Suspect]
     Indication: BLOOD CHOLESTEROL INCREASED
     Dosage: SPLITTING 10MG TABLET
     Route: 048
  2. LIPITOR [Concomitant]
     Dosage: SPLITTING 40MG TABLET
  3. FLUOXETINE HYDROCHLORIDE [Concomitant]
     Dates: start: 20050101
  4. ASPIRIN [Concomitant]
  5. VITAMIN CAP [Concomitant]
  6. OMEGA 3 [Concomitant]

REACTIONS (1)
  - COGNITIVE DISORDER [None]
